FAERS Safety Report 15191892 (Version 2)
Quarter: 2021Q4

REPORT INFORMATION
  Report Type: Spontaneous
  Country: GB (occurrence: GB)
  Receive Date: 20180724
  Receipt Date: 20211201
  Transmission Date: 20220304
  Serious: Yes (Other)
  Sender: FDA-Public Use
  Company Number: None

PATIENT
  Age: 53 Year
  Sex: Female
  Weight: 51 kg

DRUGS (2)
  1. VAGIFEM [Suspect]
     Active Substance: ESTRADIOL
     Indication: Vaginal discharge
     Dosage: 10 UG (PHARMACEUTICAL DOSE FORM (FREE TEXT): 180)
     Route: 067
     Dates: start: 20180618, end: 20180702
  2. LATANOPROST [Concomitant]
     Active Substance: LATANOPROST
     Indication: Product used for unknown indication
     Dosage: UNK
     Route: 065

REACTIONS (6)
  - Ocular hyperaemia [Unknown]
  - Joint swelling [Not Recovered/Not Resolved]
  - Asthenopia [Unknown]
  - Epistaxis [Recovered/Resolved]
  - Vision blurred [Not Recovered/Not Resolved]
  - Product use in unapproved indication [Unknown]

NARRATIVE: CASE EVENT DATE: 20180618
